FAERS Safety Report 4360752-6 (Version None)
Quarter: 2004Q2

REPORT INFORMATION
  Report Type: 
  Country: None (occurrence: None)
  Receive Date: 20040517
  Receipt Date: 20040507
  Transmission Date: 20050107
  Serious: Yes (Other)
  Sender: FDA-Public Use
  Company Number: 2004-05-0696

PATIENT

DRUGS (1)
  1. CLARITIN-D 24 HOUR [Suspect]
     Dosage: ORAL
     Route: 048

REACTIONS (2)
  - SKIN CANCER [None]
  - SUNBURN [None]
